FAERS Safety Report 18587646 (Version 2)
Quarter: 2020Q4

REPORT INFORMATION
  Report Type: Report from Study
  Country: MX (occurrence: MX)
  Receive Date: 20201207
  Receipt Date: 20201224
  Transmission Date: 20210114
  Serious: Yes (Other)
  Sender: FDA-Public Use
  Company Number: NVSC2020MX322243

PATIENT
  Sex: Female
  Weight: 64 kg

DRUGS (6)
  1. DAFLON [Concomitant]
     Indication: PRODUCT USED FOR UNKNOWN INDICATION
     Dosage: 1 DF, QD (DOES NOT REMEMBER)
     Route: 048
  2. EXFORGE HCT [Suspect]
     Active Substance: AMLODIPINE BESYLATE\HYDROCHLOROTHIAZIDE\VALSARTAN
     Indication: BLOOD PRESSURE ABNORMAL
     Dosage: 1 DF, QD (STARTED 3 MONTHS AGO AND STOP DATE 2 OR 3 WEEKS AGO)
     Route: 048
  3. ELIQUIS [Concomitant]
     Active Substance: APIXABAN
     Indication: ANTICOAGULANT THERAPY
     Dosage: 1 DF, QD (SEVERAL YEARS AGO)
     Route: 048
  4. DIOVAN [Suspect]
     Active Substance: VALSARTAN
     Indication: BLOOD PRESSURE ABNORMAL
     Dosage: 0.5 DF, QD (STARTED 3 MONTHS AGO)
     Route: 048
  5. LOPRESOR [Suspect]
     Active Substance: METOPROLOL
     Indication: BLOOD PRESSURE ABNORMAL
     Dosage: 0.5 DF, QD (1 YEAR AGO)
     Route: 048
  6. COAPROVEL [Concomitant]
     Active Substance: HYDROCHLOROTHIAZIDE\IRBESARTAN
     Indication: BLOOD PRESSURE MEASUREMENT
     Dosage: 0.5 DF, QD (1 YEAR AGO)
     Route: 048

REACTIONS (4)
  - Internal haemorrhage [Recovered/Resolved]
  - Bowel movement irregularity [Recovered/Resolved]
  - Abdominal pain upper [Recovered/Resolved]
  - Product prescribing error [Unknown]
